FAERS Safety Report 6235476-0 (Version None)
Quarter: 2009Q2

REPORT INFORMATION
  Report Type: 
  Country: None (occurrence: None)
  Receive Date: 20090618
  Receipt Date: 20080418
  Transmission Date: 20091009
  Serious: No
  Sender: FDA-Public Use
  Company Number: US-ASTRAZENECA-2008UW08027

PATIENT
  Age: 11 Year
  Sex: Female

DRUGS (3)
  1. RHINOCORT [Suspect]
     Indication: NASAL CONGESTION
     Route: 045
  2. RHINOCORT [Suspect]
     Route: 045
  3. OVER THE COUNTER ALLERGY MEDICATIONS [Concomitant]

REACTIONS (1)
  - WEIGHT INCREASED [None]
